FAERS Safety Report 7779247-2 (Version None)
Quarter: 2011Q3

REPORT INFORMATION
  Report Type: 
  Country: None (occurrence: None)
  Receive Date: 20110926
  Receipt Date: 20110916
  Transmission Date: 20111222
  Serious: Yes (Other)
  Sender: FDA-Public Use
  Company Number: US-ASTRAZENECA-2011SE56216

PATIENT
  Sex: Female

DRUGS (4)
  1. SEROQUEL XR [Suspect]
     Indication: BIPOLAR II DISORDER
     Route: 048
  2. SEROQUEL XR [Suspect]
     Dosage: 900 MG OF SEROQUEL BUT UNKNOWN IF XR OR IR
     Route: 048
  3. LAMICTAL [Concomitant]
     Dosage: 300 OR 400 MG DAILY
     Route: 048
     Dates: start: 20110101, end: 20110101
  4. SEROQUEL XR [Suspect]
     Route: 048
     Dates: start: 20110101

REACTIONS (3)
  - PRE-ECLAMPSIA [None]
  - MATERNAL EXPOSURE DURING PREGNANCY [None]
  - PREMATURE LABOUR [None]
